FAERS Safety Report 19512049 (Version 1)
Quarter: 2021Q3

REPORT INFORMATION
  Report Type: Spontaneous
  Country: CN (occurrence: CN)
  Receive Date: 20210709
  Receipt Date: 20210709
  Transmission Date: 20211014
  Serious: Yes (Other)
  Sender: FDA-Public Use
  Company Number: CN-PFIZER INC-2021777289

PATIENT
  Age: 69 Year
  Sex: Male

DRUGS (7)
  1. CYCLOPHOSPHAMIDE. [Suspect]
     Active Substance: CYCLOPHOSPHAMIDE
     Indication: LYMPHOMA
     Dosage: 1.300 MG, 1X/DAY
     Route: 041
     Dates: start: 20210603, end: 20210603
  2. VORICONAZOLE. [Concomitant]
     Active Substance: VORICONAZOLE
     Indication: PNEUMONIA FUNGAL
     Dosage: 0.200 G, 2X/DAY
     Route: 048
     Dates: start: 20210530, end: 20210617
  3. PREDNISONE ACETATE [Suspect]
     Active Substance: PREDNISONE ACETATE
     Indication: LYMPHOMA
     Dosage: 50.000 MG, 2X/DAY
     Route: 048
     Dates: start: 20210603, end: 20210607
  4. LAI LI XIN [Concomitant]
     Active Substance: LEVOFLOXACIN
     Indication: URINARY TRACT INFECTION
     Dosage: 0.500 G, 1X/DAY
     Route: 041
     Dates: start: 20210602, end: 20210608
  5. VANCOMYCIN HYDROCHLORIDE. [Concomitant]
     Active Substance: VANCOMYCIN HYDROCHLORIDE
     Indication: URINARY TRACT INFECTION
     Dosage: 0.500 G, 2X/DAY
     Route: 048
     Dates: start: 20210609, end: 20210617
  6. EPIRUBICIN HCL [Suspect]
     Active Substance: EPIRUBICIN HYDROCHLORIDE
     Indication: LYMPHOMA
     Dosage: 60.000 MG, 1X/DAY
     Route: 041
     Dates: start: 20210603, end: 20210604
  7. BORTEZOMIB. [Suspect]
     Active Substance: BORTEZOMIB
     Indication: LYMPHOMA
     Dosage: 2.700 MG, ONCE IN 3 DAYS
     Route: 042
     Dates: start: 20210603, end: 20210613

REACTIONS (4)
  - Pneumonia fungal [Unknown]
  - Respiratory failure [Unknown]
  - Myelosuppression [Unknown]
  - Condition aggravated [Unknown]

NARRATIVE: CASE EVENT DATE: 20210614
